FAERS Safety Report 5482252-2 (Version None)
Quarter: 2007Q4

REPORT INFORMATION
  Report Type: 
  Country: None (occurrence: None)
  Receive Date: 20071011
  Receipt Date: 20070927
  Transmission Date: 20080405
  Serious: Yes (Death, Life-Threatening, Hospitalization, Other)
  Sender: FDA-Public Use
  Company Number: IN-ELI_LILLY_AND_COMPANY-IN200708005878

PATIENT
  Sex: Female
  Weight: 68 kg

DRUGS (3)
  1. LISPRO [Suspect]
     Indication: TYPE 2 DIABETES MELLITUS
     Dosage: 48 U, DAILY (1/D)
     Route: 058
     Dates: start: 20070813
  2. LANTUS [Suspect]
     Indication: TYPE 2 DIABETES MELLITUS
     Dosage: 52 U, EACH EVENING
     Dates: start: 20070813
  3. METFORMIN HCL [Concomitant]
     Indication: TYPE 2 DIABETES MELLITUS
     Dosage: 500 MG, 3/D
     Route: 048
     Dates: start: 20020101

REACTIONS (20)
  - ALTERED STATE OF CONSCIOUSNESS [None]
  - CARDIO-RESPIRATORY ARREST [None]
  - DIABETIC FOOT [None]
  - DIZZINESS [None]
  - FALL [None]
  - FATIGUE [None]
  - FOOT AMPUTATION [None]
  - GANGRENE [None]
  - HYPOGLYCAEMIA [None]
  - HYPOXIA [None]
  - IMPAIRED HEALING [None]
  - LACERATION [None]
  - LEG AMPUTATION [None]
  - LIMB INJURY [None]
  - LOCALISED INFECTION [None]
  - OPEN WOUND [None]
  - ORAL INTAKE REDUCED [None]
  - PROCEDURAL COMPLICATION [None]
  - SEPSIS [None]
  - TOE AMPUTATION [None]
